FAERS Safety Report 6860811-X (Version None)
Quarter: 2010Q3

REPORT INFORMATION
  Report Type: 
  Country: None (occurrence: None)
  Receive Date: 20100720
  Receipt Date: 20100715
  Transmission Date: 20110219
  Serious: Yes (Other)
  Sender: FDA-Public Use
  Company Number: AU-MERCK-1007USA01669

PATIENT
  Age: 70 Year
  Sex: Female

DRUGS (2)
  1. FOSAMAX [Suspect]
     Route: 048
     Dates: start: 20030101, end: 20050101
  2. FOSAMAX [Suspect]
     Route: 048
     Dates: start: 20080101, end: 20100101

REACTIONS (2)
  - ALOPECIA [None]
  - NEOPLASM MALIGNANT [None]
